FAERS Safety Report 4740333-2 (Version None)
Quarter: 2005Q3

REPORT INFORMATION
  Report Type: 
  Country: None (occurrence: None)
  Receive Date: 20050810
  Receipt Date: 20050728
  Transmission Date: 20060218
  Serious: Yes (Hospitalization)
  Sender: FDA-Public Use
  Company Number: FR-JNJFOC-20050705922

PATIENT
  Age: 82 Year
  Sex: Male

DRUGS (7)
  1. DURAGESIC-100 [Suspect]
     Route: 062
  2. ANDROCUR [Concomitant]
     Route: 065
  3. MODOPAR [Concomitant]
     Route: 065
  4. MODOPAR [Concomitant]
     Indication: PARKINSON'S DISEASE
     Route: 065
  5. PREVISCAN [Concomitant]
     Route: 065
  6. STILNOX [Concomitant]
     Route: 065
  7. DETENSIEL [Concomitant]
     Route: 065

REACTIONS (6)
  - CONFUSIONAL STATE [None]
  - INTESTINAL OBSTRUCTION [None]
  - OBSTRUCTION [None]
  - PNEUMONIA ASPIRATION [None]
  - SOMNOLENCE [None]
  - VOMITING [None]
